FAERS Safety Report 15478055 (Version 1)
Quarter: 2018Q4

REPORT INFORMATION
  Report Type: Spontaneous
  Country: US (occurrence: US)
  Receive Date: 20181002
  Receipt Date: 20181002
  Transmission Date: 20190205
  Serious: No
  Sender: FDA-Public Use
  Company Number: None

PATIENT
  Sex: Female
  Weight: 53.1 kg

DRUGS (4)
  1. PROBIOTIC [Concomitant]
     Active Substance: PROBIOTICS NOS
  2. OMEZAPROLE [Concomitant]
  3. CVS HEALTH STERILE SALINE NASAL MIST SODIUM CHLORIDE 0.9% [Suspect]
     Active Substance: SODIUM CHLORIDE
     Indication: SINUS OPERATION
     Route: 055
     Dates: start: 20171206, end: 20180815
  4. CALCIUM AND D3 [Concomitant]

REACTIONS (2)
  - Respiratory disorder [None]
  - Recalled product administered [None]

NARRATIVE: CASE EVENT DATE: 20171206
